FAERS Safety Report 9425213 (Version 1)
Quarter: 2013Q3

REPORT INFORMATION
  Report Type: Spontaneous
  Country: ZA (occurrence: ZA)
  Receive Date: 20130729
  Receipt Date: 20130729
  Transmission Date: 20140515
  Serious: Yes (Hospitalization)
  Sender: FDA-Public Use
  Company Number: ZA-PFIZER INC-2013208273

PATIENT
  Age: 50 Year
  Sex: Female

DRUGS (4)
  1. CHAMPIX [Suspect]
     Indication: SMOKING CESSATION THERAPY
     Dosage: STARTER PACK (DOSE NOT SPECIFIED)
     Route: 048
     Dates: start: 201305
  2. ELTROXIN [Concomitant]
     Indication: THYROIDECTOMY
     Dosage: 0.1 MG, 1X/DAY
     Route: 048
  3. ACTIVELLE [Concomitant]
     Indication: HORMONE REPLACEMENT THERAPY
     Dosage: UNK, 1X/DAY
     Route: 048
  4. ZOPAX [Concomitant]
     Dosage: 0.5 MG, 1X/DAY
     Route: 048

REACTIONS (5)
  - Transient ischaemic attack [Recovered/Resolved]
  - Cerebrovascular accident [Recovered/Resolved]
  - Thrombocytosis [Recovered/Resolved]
  - Musculoskeletal stiffness [Recovered/Resolved]
  - Hypothyroidism [Unknown]
